FAERS Safety Report 8381396-5 (Version None)
Quarter: 2012Q2

REPORT INFORMATION
  Report Type: 
  Country: None (occurrence: None)
  Receive Date: 20120523
  Receipt Date: 20120517
  Transmission Date: 20120825
  Serious: Yes (Hospitalization)
  Sender: FDA-Public Use
  Company Number: PHHY2012FR034831

PATIENT
  Age: 47 Year
  Sex: Female

DRUGS (2)
  1. CLOMIPRAMINE HCL [Suspect]
     Indication: DEPRESSION
     Dosage: 50 MG, UNK
  2. BROMAZEPAM [Concomitant]
     Indication: DEPRESSION
     Dosage: 3 MG/DAY

REACTIONS (20)
  - DYSPNOEA [None]
  - EOSINOPHILIA [None]
  - PRURITUS [None]
  - LUNG CONSOLIDATION [None]
  - WHEEZING [None]
  - ASTHENIA [None]
  - HUMAN HERPES VIRUS 6 SEROLOGY POSITIVE [None]
  - DRUG RASH WITH EOSINOPHILIA AND SYSTEMIC SYMPTOMS [None]
  - EOSINOPHILIC PNEUMONIA [None]
  - ALVEOLITIS [None]
  - NON-CARDIAC CHEST PAIN [None]
  - PYREXIA [None]
  - RASH VESICULAR [None]
  - INFLAMMATION [None]
  - LUNG DISORDER [None]
  - LYMPHADENOPATHY [None]
  - DIARRHOEA [None]
  - PULMONARY HILAR ENLARGEMENT [None]
  - RALES [None]
  - COUGH [None]
